FAERS Safety Report 6993524-4 (Version None)
Quarter: 2010Q3

REPORT INFORMATION
  Report Type: 
  Country: None (occurrence: None)
  Receive Date: 20100917
  Receipt Date: 20100628
  Transmission Date: 20110219
  Serious: No
  Sender: FDA-Public Use
  Company Number: US-ASTRAZENECA-2010SE30149

PATIENT
  Age: 56 Year
  Sex: Female
  Weight: 99.8 kg

DRUGS (1)
  1. SEROQUEL [Suspect]
     Indication: BIPOLAR DISORDER
     Route: 048
     Dates: start: 20090101, end: 20100301

REACTIONS (3)
  - ANXIETY [None]
  - DRUG DOSE OMISSION [None]
  - PANIC ATTACK [None]
